FAERS Safety Report 18958290 (Version 2)
Quarter: 2021Q1

REPORT INFORMATION
  Report Type: Report from Study
  Country: AT (occurrence: AT)
  Receive Date: 20210302
  Receipt Date: 20210317
  Transmission Date: 20210420
  Serious: Yes (Other)
  Sender: FDA-Public Use
  Company Number: AT-UCBSA-2021008756

PATIENT
  Age: 58 Year
  Sex: Male
  Weight: 97 kg

DRUGS (3)
  1. IBUPROFEN. [Concomitant]
     Active Substance: IBUPROFEN
     Indication: PAIN
     Dosage: 400 MILLIGRAM, AS NEEDED (PRN)
     Route: 048
     Dates: start: 201803
  2. LISINOCOMP GENERICON PHARMA [Concomitant]
     Indication: ORTHOSTATIC HYPERTENSION
     Dosage: 1 TABLET, ONCE DAILY (QD)
     Route: 048
     Dates: start: 201502
  3. CERTOLIZUMAB PEGOL [Suspect]
     Active Substance: CERTOLIZUMAB PEGOL
     Indication: PSORIATIC ARTHROPATHY
     Dosage: 200 MILLIGRAM, EV 2 WEEKS(QOW)
     Route: 058
     Dates: start: 20171010

REACTIONS (2)
  - COVID-19 [Recovered/Resolved]
  - Quarantine [Unknown]

NARRATIVE: CASE EVENT DATE: 2020
